FAERS Safety Report 4977805-1 (Version None)
Quarter: 2006Q1

REPORT INFORMATION
  Report Type: 
  Country: None (occurrence: None)
  Receive Date: 20060215
  Receipt Date: 20050809
  Transmission Date: 20060701
  Serious: Yes (Other)
  Sender: FDA-Public Use
  Company Number: MC200500744

PATIENT

DRUGS (2)
  1. BIVALIRUDIN(BIVALIRUDIN) INJECTION [Suspect]
     Dosage: 0.75 MG/KG, BOLUS, IV BOLUS
     Route: 040
  2. BIVALIRUDIN(BIVALIRUDIN) INJECTION [Suspect]
     Dosage: 1.75 MG/KG, HR, INTRAVENOUS
     Route: 042

REACTIONS (2)
  - CHEST PAIN [None]
  - STENT OCCLUSION [None]
